FAERS Safety Report 17434924 (Version 1)
Quarter: 2020Q1

REPORT INFORMATION
  Report Type: Spontaneous
  Country: US (occurrence: US)
  Receive Date: 20200218
  Receipt Date: 20200218
  Transmission Date: 20200409
  Serious: Yes (Other)
  Sender: FDA-Public Use
  Company Number: None

PATIENT
  Sex: Female

DRUGS (1)
  1. LACTOLOSE 20GM/ML SOLUTION [Suspect]
     Active Substance: LACTULOSE

REACTIONS (2)
  - Abdominal discomfort [None]
  - Muscle spasms [None]
